FAERS Safety Report 15110026 (Version 1)
Quarter: 2018Q3

REPORT INFORMATION
  Report Type: Spontaneous
  Country: US (occurrence: US)
  Receive Date: 20180705
  Receipt Date: 20180705
  Transmission Date: 20181010
  Serious: No
  Sender: FDA-Public Use
  Company Number: US-VERTEX PHARMACEUTICALS-2018-003647

PATIENT
  Age: 59 Year
  Sex: Female

DRUGS (5)
  1. ZENPEP [Concomitant]
     Active Substance: PANCRELIPASE AMYLASE\PANCRELIPASE LIPASE\PANCRELIPASE PROTEASE
  2. INSULIN [Concomitant]
     Active Substance: INSULIN NOS
     Indication: DIABETES MELLITUS
  3. SYMDEKO [Suspect]
     Active Substance: IVACAFTOR\TEZACAFTOR
     Indication: CYSTIC FIBROSIS
     Dosage: 100MG TEZACAFTOR/150MG IVACAFTOR AM; 150MG IVACAFTOR PM
     Route: 048
     Dates: start: 20180502, end: 201806
  4. HYPERSAL [Concomitant]
  5. COMPLETE MULTI VIT [Concomitant]
     Active Substance: VITAMINS

REACTIONS (6)
  - Chest discomfort [Not Recovered/Not Resolved]
  - Tremor [Unknown]
  - Muscular weakness [Unknown]
  - Anxiety [Recovering/Resolving]
  - Diabetes mellitus inadequate control [Recovering/Resolving]
  - Ear pain [Not Recovered/Not Resolved]

NARRATIVE: CASE EVENT DATE: 201805
